FAERS Safety Report 12976777 (Version 1)
Quarter: 2016Q4

REPORT INFORMATION
  Report Type: Spontaneous
  Country: US (occurrence: US)
  Receive Date: 20161128
  Receipt Date: 20161128
  Transmission Date: 20170207
  Serious: No
  Sender: FDA-Public Use
  Company Number: US-B.I. PHARMACEUTICALS,INC./RIDGEFIELD-2016-BI-080593

PATIENT
  Sex: Male

DRUGS (1)
  1. SPIRIVA [Suspect]
     Active Substance: TIOTROPIUM BROMIDE MONOHYDRATE
     Indication: PRODUCT USED FOR UNKNOWN INDICATION
     Route: 055

REACTIONS (25)
  - Oropharyngeal pain [Unknown]
  - Sputum increased [Unknown]
  - Arthralgia [Unknown]
  - Anxiety [Unknown]
  - Polydipsia [Unknown]
  - Dyspnoea [Unknown]
  - Dysphonia [Unknown]
  - Dyspepsia [Unknown]
  - Rash [Unknown]
  - Amnesia [Unknown]
  - Diarrhoea [Unknown]
  - Pruritus [Unknown]
  - Asthenia [Unknown]
  - Muscle spasms [Unknown]
  - Haemoptysis [Unknown]
  - Gastrooesophageal reflux disease [Unknown]
  - Orthopnoea [Unknown]
  - Somnolence [Unknown]
  - Hyperhidrosis [Unknown]
  - Eye discharge [Unknown]
  - Nasal congestion [Unknown]
  - Wheezing [Unknown]
  - Upper-airway cough syndrome [Unknown]
  - Depression [Unknown]
  - Temperature intolerance [Unknown]
